FAERS Safety Report 20143476 (Version 1)
Quarter: 2021Q4

REPORT INFORMATION
  Report Type: Spontaneous
  Country: US (occurrence: US)
  Receive Date: 20211203
  Receipt Date: 20211203
  Transmission Date: 20220303
  Serious: Yes (Hospitalization)
  Sender: FDA-Public Use
  Company Number: US-SUN PHARMACEUTICAL INDUSTRIES LTD-2021R1-319442

PATIENT
  Age: 80 Year
  Sex: Male

DRUGS (1)
  1. OLANZAPINE [Suspect]
     Active Substance: OLANZAPINE
     Indication: Insomnia
     Dosage: 5 MILLIGRAM AT 2030 HOURS
     Route: 048

REACTIONS (4)
  - Respiratory alkalosis [Recovered/Resolved]
  - Hyperventilation [Recovered/Resolved]
  - Off label use [Unknown]
  - Insomnia [Unknown]
